FAERS Safety Report 9749836 (Version 2)
Quarter: 2014Q1

REPORT INFORMATION
  Report Type: Spontaneous
  Country: US (occurrence: US)
  Receive Date: 20131212
  Receipt Date: 20140107
  Transmission Date: 20141002
  Serious: No
  Sender: FDA-Public Use
  Company Number: US-PFIZER INC-2013355501

PATIENT
  Age: 61 Year
  Sex: Female
  Weight: 66.67 kg

DRUGS (2)
  1. LYRICA [Suspect]
     Indication: FIBROMYALGIA
     Dosage: 100 MG, 3X/DAY
     Dates: start: 201311
  2. LYRICA [Suspect]
     Dosage: UNK
     Dates: start: 2013, end: 20131210

REACTIONS (1)
  - Pain [Not Recovered/Not Resolved]
